FAERS Safety Report 22123759 (Version 2)
Quarter: 2023Q1

REPORT INFORMATION
  Report Type: Report from Study
  Country: US (occurrence: US)
  Receive Date: 20230322
  Receipt Date: 20230329
  Transmission Date: 20230417
  Serious: No
  Sender: FDA-Public Use
  Company Number: US-002147023-NVSC2023US060638

PATIENT
  Sex: Male

DRUGS (1)
  1. ENTRESTO [Suspect]
     Active Substance: SACUBITRIL\VALSARTAN
     Indication: Product used for unknown indication
     Dosage: UNK (2.5 TO 3 MONTHS)
     Route: 065

REACTIONS (4)
  - Arterial occlusive disease [Recovering/Resolving]
  - COVID-19 [Unknown]
  - Fatigue [Unknown]
  - Dizziness [Unknown]
